FAERS Safety Report 5372144-1 (Version None)
Quarter: 2007Q2

REPORT INFORMATION
  Report Type: 
  Country: None (occurrence: None)
  Receive Date: 20070627
  Receipt Date: 20070620
  Transmission Date: 20071010
  Serious: Yes (Other)
  Sender: FDA-Public Use
  Company Number: B0476734A

PATIENT
  Age: 30 Month
  Sex: Female
  Weight: 15.8 kg

DRUGS (1)
  1. CALPOL [Suspect]
     Indication: PREOPERATIVE CARE
     Route: 048
     Dates: start: 20070527, end: 20070527

REACTIONS (6)
  - COUGH [None]
  - LIP SWELLING [None]
  - OBSTRUCTIVE AIRWAYS DISORDER [None]
  - OEDEMA PERIPHERAL [None]
  - PRURITUS [None]
  - URTICARIA [None]
